FAERS Safety Report 7972491-0 (Version None)
Quarter: 2011Q4

REPORT INFORMATION
  Report Type: 
  Country: None (occurrence: None)
  Receive Date: 20111213
  Receipt Date: 20111205
  Transmission Date: 20120403
  Serious: Yes (Hospitalization)
  Sender: FDA-Public Use
  Company Number: AR-AMGEN-ARGSP2011062454

PATIENT
  Age: 71 Year
  Sex: Male
  Weight: 74 kg

DRUGS (2)
  1. ENBREL [Suspect]
     Indication: RHEUMATOID ARTHRITIS
     Dosage: 50 MG, WEEKLY
     Route: 058
     Dates: start: 20111117, end: 20111117
  2. PREDNISONE [Concomitant]
     Dosage: UNK

REACTIONS (4)
  - VERTIGO [None]
  - DIZZINESS [None]
  - VOMITING [None]
  - LOSS OF CONSCIOUSNESS [None]
